FAERS Safety Report 6424468-4 (Version None)
Quarter: 2009Q4

REPORT INFORMATION
  Report Type: 
  Country: None (occurrence: None)
  Receive Date: 20091103
  Receipt Date: 20091019
  Transmission Date: 20100525
  Serious: Yes (Hospitalization, Disabling, Other)
  Sender: FDA-Public Use
  Company Number: US-ROCHE-423646

PATIENT
  Sex: Female
  Weight: 54.9 kg

DRUGS (1)
  1. ACCUTANE [Suspect]
     Indication: ACNE
     Route: 048
     Dates: start: 19840101, end: 19840601

REACTIONS (37)
  - ANHEDONIA [None]
  - ANTEPARTUM HAEMORRHAGE [None]
  - ANXIETY [None]
  - BONE DENSITY DECREASED [None]
  - BUNDLE BRANCH BLOCK RIGHT [None]
  - COLITIS [None]
  - COLITIS ULCERATIVE [None]
  - COMPLEX REGIONAL PAIN SYNDROME [None]
  - CROHN'S DISEASE [None]
  - DEPRESSION [None]
  - DRUG EXPOSURE DURING PREGNANCY [None]
  - ECONOMIC PROBLEM [None]
  - EPICONDYLITIS [None]
  - GASTROINTESTINAL DISORDER [None]
  - HAEMANGIOMA [None]
  - HAEMORRHOIDS [None]
  - HEPATIC LESION [None]
  - INFLAMMATORY BOWEL DISEASE [None]
  - INTERVERTEBRAL DISC DISPLACEMENT [None]
  - INTERVERTEBRAL DISC PROTRUSION [None]
  - INTESTINAL HAEMORRHAGE [None]
  - IRRITABLE BOWEL SYNDROME [None]
  - LIGAMENT RUPTURE [None]
  - MULTIPLE INJURIES [None]
  - MYOCARDIAL ISCHAEMIA [None]
  - OVARIAN CYST [None]
  - PATELLOFEMORAL PAIN SYNDROME [None]
  - PROCTITIS [None]
  - RADICULITIS LUMBOSACRAL [None]
  - RECTAL HAEMORRHAGE [None]
  - RIB FRACTURE [None]
  - ROAD TRAFFIC ACCIDENT [None]
  - SEASONAL ALLERGY [None]
  - SUICIDAL IDEATION [None]
  - SYNOVIAL CYST [None]
  - UNEVALUABLE EVENT [None]
  - WEIGHT DECREASED [None]
